FAERS Safety Report 10304365 (Version 1)
Quarter: 2014Q3

REPORT INFORMATION
  Report Type: Spontaneous
  Country: FI (occurrence: FI)
  Receive Date: 20140715
  Receipt Date: 20140715
  Transmission Date: 20150326
  Serious: No
  Sender: FDA-Public Use
  Company Number: FI-B.I. PHARMACEUTICALS,INC./RIDGEFIELD-2014-BI-30840SF

PATIENT
  Age: 79 Year
  Sex: Male

DRUGS (7)
  1. PRIMASPAN [Concomitant]
     Route: 065
  2. PARATABS [Concomitant]
     Route: 065
  3. DULCOGAS [Suspect]
     Active Substance: DIMETHICONE
     Indication: FLATULENCE
     Dosage: 125 MG
     Route: 048
     Dates: start: 20140628, end: 20140629
  4. LITALGIN [Concomitant]
     Active Substance: PITOFENONE
     Route: 065
  5. TAMSUMIN [Concomitant]
     Route: 065
  6. METFORMIN [Concomitant]
     Active Substance: METFORMIN HYDROCHLORIDE
     Route: 065
  7. IMODIUM [Concomitant]
     Active Substance: LOPERAMIDE HYDROCHLORIDE
     Route: 065

REACTIONS (2)
  - Fatigue [Recovered/Resolved]
  - Dizziness [Recovered/Resolved]

NARRATIVE: CASE EVENT DATE: 20140628
